FAERS Safety Report 8411500 (Version 4)
Quarter: 2014Q1

REPORT INFORMATION
  Report Type: Spontaneous
  Country: US (occurrence: None)
  Receive Date: 20111227
  Receipt Date: 20130107
  Transmission Date: 20141002
  Serious: No
  Sender: FDA-Public Use
  Company Number: PHEH2011US08282

PATIENT
  Age: 47 Year
  Sex: Male
  Weight: 74.8 kg

DRUGS (1)
  1. GILENYA (FTY) CAPSULE, 0.5 MG [Suspect]
     Indication: MULTIPLE SCLEROSIS
     Route: 048
     Dates: start: 201105

REACTIONS (6)
  - Mood altered [None]
  - Malaise [None]
  - Vomiting [None]
  - Therapeutic response unexpected [None]
  - Sleep talking [None]
  - Headache [None]
